FAERS Safety Report 15451514 (Version 3)
Quarter: 2018Q4

REPORT INFORMATION
  Report Type: Spontaneous
  Country: CN (occurrence: CN)
  Receive Date: 20181001
  Receipt Date: 20181127
  Transmission Date: 20190204
  Serious: Yes (Other)
  Sender: FDA-Public Use
  Company Number: CN-PFIZER INC-2018394169

PATIENT
  Age: 79 Year
  Sex: Male
  Weight: 45 kg

DRUGS (9)
  1. MEROPENEM. [Suspect]
     Active Substance: MEROPENEM
     Indication: INFECTION
     Dosage: 0.5 G, 4X/DAY (Q6H)
     Route: 041
     Dates: start: 20180110, end: 20180111
  2. DOXOFYLLINE [Concomitant]
     Active Substance: DOXOFYLLINE
     Indication: INFLAMMATION
     Dosage: UNK
     Dates: start: 201801
  3. VALSARTAN. [Concomitant]
     Active Substance: VALSARTAN
     Indication: BLOOD PRESSURE MEASUREMENT
     Dosage: UNK
     Dates: start: 201801
  4. AMBROXOL [Concomitant]
     Active Substance: AMBROXOL
     Indication: INFLAMMATION
     Dosage: 30 MG, DAILY
     Route: 041
     Dates: start: 201801
  5. IPRATROPIUM BROMIDE. [Concomitant]
     Active Substance: IPRATROPIUM BROMIDE
     Indication: INFLAMMATION
     Dosage: UNK
     Route: 055
     Dates: start: 201801
  6. MEROPENEM. [Suspect]
     Active Substance: MEROPENEM
     Indication: BRONCHITIS
  7. MEROPENEM. [Suspect]
     Active Substance: MEROPENEM
     Indication: ESCHERICHIA INFECTION
  8. TERBUTALINE SULPHATE [Concomitant]
     Active Substance: TERBUTALINE SULFATE
     Indication: INFLAMMATION
     Dosage: UNK
     Route: 055
     Dates: start: 201801
  9. BUDESONIDE. [Concomitant]
     Active Substance: BUDESONIDE
     Indication: INFLAMMATION
     Dosage: UNK
     Route: 055
     Dates: start: 201801

REACTIONS (1)
  - Cardiac failure acute [Recovering/Resolving]

NARRATIVE: CASE EVENT DATE: 20180111
